FAERS Safety Report 6815768-4 (Version None)
Quarter: 2010Q3

REPORT INFORMATION
  Report Type: 
  Country: None (occurrence: None)
  Receive Date: 20100704
  Receipt Date: 20100630
  Transmission Date: 20110219
  Serious: Yes (Other)
  Sender: FDA-Public Use
  Company Number: US-BRISTOL-MYERS SQUIBB COMPANY-15172935

PATIENT
  Age: 52 Year
  Sex: Female

DRUGS (3)
  1. ERBITUX [Suspect]
     Dosage: NO. OF TREATMENT:5
  2. MICONAZOLE [Concomitant]
  3. BACITRACIN [Concomitant]

REACTIONS (4)
  - BURNING SENSATION [None]
  - FATIGUE [None]
  - ORAL DISCOMFORT [None]
  - SWELLING [None]
